FAERS Safety Report 5935087-8 (Version None)
Quarter: 2008Q4

REPORT INFORMATION
  Report Type: 
  Country: None (occurrence: None)
  Receive Date: 20081030
  Receipt Date: 20080929
  Transmission Date: 20090506
  Serious: No
  Sender: FDA-Public Use
  Company Number: US-BAYER-200830819NA

PATIENT
  Sex: Female

DRUGS (4)
  1. YAZ [Suspect]
     Indication: DRUG USE FOR UNKNOWN INDICATION
     Route: 048
     Dates: start: 20080803, end: 20080807
  2. ORTHO TRI-CYCLEN LO [Concomitant]
     Dates: start: 20080807
  3. SYNTHROID [Concomitant]
     Indication: HYPOTHYROIDISM
  4. MERCAPTOPURINE [Concomitant]
     Indication: COLITIS ULCERATIVE
     Dates: start: 20050101

REACTIONS (7)
  - CHEILITIS [None]
  - CHROMATURIA [None]
  - CYSTITIS [None]
  - GLOSSODYNIA [None]
  - HYPOAESTHESIA ORAL [None]
  - PARAESTHESIA ORAL [None]
  - POLLAKIURIA [None]
